FAERS Safety Report 13874506 (Version 1)
Quarter: 2017Q3

REPORT INFORMATION
  Report Type: Spontaneous
  Country: US (occurrence: US)
  Receive Date: 20170816
  Receipt Date: 20170816
  Transmission Date: 20171127
  Serious: No
  Sender: FDA-Public Use
  Company Number: US-ROCHE-1095173

PATIENT
  Sex: Male

DRUGS (2)
  1. LUCENTIS [Suspect]
     Active Substance: RANIBIZUMAB
     Indication: PRODUCT USED FOR UNKNOWN INDICATION
     Route: 050
     Dates: start: 20120720, end: 20120720
  2. OFLOXACIN. [Concomitant]
     Active Substance: OFLOXACIN
     Dosage: EVERY 2 X 24
     Route: 065

REACTIONS (2)
  - Eye swelling [Unknown]
  - No adverse event [Unknown]
